FAERS Safety Report 9797408 (Version 4)
Quarter: 2014Q1

REPORT INFORMATION
  Report Type: Spontaneous
  Country: US (occurrence: US)
  Receive Date: 20140106
  Receipt Date: 20140212
  Transmission Date: 20141002
  Serious: Yes (Other)
  Sender: FDA-Public Use
  Company Number: US-009507513-1312USA009990

PATIENT
  Age: 25 Year
  Sex: Female
  Weight: 99.77 kg

DRUGS (2)
  1. IMPLANON [Suspect]
     Dosage: UNK
     Route: 030
     Dates: start: 201106
  2. IMPLANON [Suspect]
     Dosage: UNK
     Route: 059
     Dates: end: 201106

REACTIONS (5)
  - Complication of device removal [Not Recovered/Not Resolved]
  - Device deployment issue [Not Recovered/Not Resolved]
  - Medical device complication [Not Recovered/Not Resolved]
  - Incorrect route of drug administration [Unknown]
  - Implant site scar [Unknown]
